FAERS Safety Report 7537163-5 (Version None)
Quarter: 2011Q2

REPORT INFORMATION
  Report Type: 
  Country: None (occurrence: None)
  Receive Date: 20110609
  Receipt Date: 20110603
  Transmission Date: 20111010
  Serious: Yes (Other)
  Sender: FDA-Public Use
  Company Number: PHHY2011US48786

PATIENT
  Age: 14 Year
  Sex: Male

DRUGS (2)
  1. TOBI [Suspect]
     Dosage: 300 MG, BID VIA NEBULIZER 28 DAYS ON AND 28 DAYS OFF
     Dates: start: 20081217, end: 20100517
  2. PULMOZYME [Concomitant]
     Dosage: 2.5 ML, QD VIA NEBULIZER

REACTIONS (1)
  - STAPHYLOCOCCAL INFECTION [None]
